FAERS Safety Report 20161451 (Version 1)
Quarter: 2021Q4

REPORT INFORMATION
  Report Type: Spontaneous
  Country: US (occurrence: None)
  Receive Date: 20211207
  Receipt Date: 20211207
  Transmission Date: 20220303
  Serious: Yes (Other)
  Sender: FDA-Public Use
  Company Number: None

PATIENT
  Age: 69 Year
  Sex: Male
  Weight: 99 kg

DRUGS (6)
  1. BREO ELLIPTA [Suspect]
     Active Substance: FLUTICASONE FUROATE\VILANTEROL TRIFENATATE
     Indication: Dyspnoea
     Dosage: OTHER STRENGTH : MCG;?FREQUENCY : DAILY;?
     Route: 055
     Dates: start: 20211126, end: 20211206
  2. METOPROLOL SUCCINATE [Concomitant]
     Active Substance: METOPROLOL SUCCINATE
  3. ASPIRIN [Concomitant]
     Active Substance: ASPIRIN
  4. MEN^S ONE A DAY 50+ [Concomitant]
  5. VITAMIN D3 [Concomitant]
  6. ZINC GLUCONATE [Concomitant]
     Active Substance: ZINC GLUCONATE

REACTIONS (14)
  - Asthenia [None]
  - Dyspnoea [None]
  - Chest discomfort [None]
  - Condition aggravated [None]
  - Rhinorrhoea [None]
  - Oropharyngeal pain [None]
  - Throat irritation [None]
  - Cough [None]
  - Oesophageal irritation [None]
  - Sinus disorder [None]
  - Inflammation [None]
  - Dysphonia [None]
  - Sputum increased [None]
  - Drooling [None]

NARRATIVE: CASE EVENT DATE: 20211201
